FAERS Safety Report 9062117 (Version 1)
Quarter: 2013Q1

REPORT INFORMATION
  Report Type: Spontaneous
  Country: US (occurrence: US)
  Receive Date: 20130129
  Receipt Date: 20130129
  Transmission Date: 20140127
  Serious: Yes (Death)
  Sender: FDA-Public Use
  Company Number: PHHY2013US006739

PATIENT
  Age: 46 Year
  Sex: Female

DRUGS (6)
  1. CLONAZEPAM [Suspect]
  2. HYDROCHLOROTHIAZIDE [Suspect]
  3. TEMAZEPAM [Suspect]
  4. BUPROPION [Suspect]
  5. LEVOCETIRIZINE [Suspect]
  6. THYROID PREPARATIONS [Suspect]

REACTIONS (1)
  - Completed suicide [Fatal]
